FAERS Safety Report 9668370 (Version 1)
Quarter: 2013Q4

REPORT INFORMATION
  Report Type: Report from Study
  Country: MX (occurrence: MX)
  Receive Date: 20131104
  Receipt Date: 20131104
  Transmission Date: 20140711
  Serious: Yes (Other)
  Sender: FDA-Public Use
  Company Number: PHHY2013MX124738

PATIENT
  Age: 53 Year
  Sex: Male

DRUGS (5)
  1. EXFORGE [Suspect]
     Indication: HYPERTENSION
     Dosage: 1 DF, (160/10 MG) DAILY
     Route: 048
     Dates: start: 201308
  2. EXFORGE [Suspect]
     Dosage: 1 DF, (320/5 MG) DAILY
     Route: 048
  3. MICCIL [Concomitant]
     Indication: BLOOD PRESSURE MANAGEMENT
     Dosage: 1 DF, DAILY
     Route: 048
     Dates: start: 201308
  4. MUCOFLUX//SOBREROL [Concomitant]
     Dosage: 1 DF, Q6H
     Dates: start: 201308
  5. MUCOKEF [Concomitant]
     Dosage: 1 DF, Q12H

REACTIONS (7)
  - Yellow skin [Not Recovered/Not Resolved]
  - Swelling face [Not Recovered/Not Resolved]
  - Renal disorder [Not Recovered/Not Resolved]
  - Swelling [Not Recovered/Not Resolved]
  - Food allergy [Not Recovered/Not Resolved]
  - Abdominal pain [Not Recovered/Not Resolved]
  - Hypertension [Unknown]
